FAERS Safety Report 6647709-7 (Version None)
Quarter: 2010Q1

REPORT INFORMATION
  Report Type: 
  Country: None (occurrence: None)
  Receive Date: 20100323
  Receipt Date: 20100323
  Transmission Date: 20100710
  Serious: Yes (Other)
  Sender: FDA-Public Use
  Company Number: None

PATIENT
  Sex: Male
  Weight: 72.5755 kg

DRUGS (1)
  1. ALLI [Suspect]
     Indication: OVERWEIGHT
     Dosage: 60 MG 3X/D PO
     Route: 048
     Dates: start: 20100202, end: 20100204

REACTIONS (2)
  - DYSGEUSIA [None]
  - SALIVARY GLAND DISORDER [None]
